FAERS Safety Report 18884527 (Version 4)
Quarter: 2021Q3

REPORT INFORMATION
  Report Type: Report from Study
  Country: CA (occurrence: CA)
  Receive Date: 20210211
  Receipt Date: 20210712
  Transmission Date: 20211014
  Serious: Yes (Hospitalization, Other)
  Sender: FDA-Public Use
  Company Number: CA-JNJFOC-20210139330

PATIENT
  Age: 55 Year
  Sex: Female

DRUGS (3)
  1. STELARA [Suspect]
     Active Substance: USTEKINUMAB
     Route: 058
  2. STELARA [Suspect]
     Active Substance: USTEKINUMAB
     Indication: CROHN^S DISEASE
     Route: 058
     Dates: start: 20170822, end: 20210226
  3. COVID?19 VACCINE [Concomitant]
     Indication: COVID-19 PROPHYLAXIS
     Route: 065

REACTIONS (6)
  - Herpes zoster [Recovered/Resolved]
  - Product use issue [Unknown]
  - Cellulitis [Recovered/Resolved]
  - Off label use [Unknown]
  - Ear infection [Recovered/Resolved]
  - External ear cellulitis [Recovered/Resolved]

NARRATIVE: CASE EVENT DATE: 202101
